FAERS Safety Report 5460886-9 (Version None)
Quarter: 2007Q3

REPORT INFORMATION
  Report Type: 
  Country: None (occurrence: None)
  Receive Date: 20070827
  Receipt Date: 20070606
  Transmission Date: 20080115
  Serious: Yes (Other)
  Sender: FDA-Public Use
  Company Number: 1-15047632

PATIENT
  Age: 72 Year
  Sex: Female

DRUGS (5)
  1. SOTRADECOL [Suspect]
     Indication: SPIDER VEIN
     Dosage: ONCE, INTRAVENOUS (NOT SPECIFIED)
     Route: 042
     Dates: start: 20070504, end: 20070504
  2. SOTRADECOL [Suspect]
     Indication: VARICOSE VEIN
     Dosage: ONCE, INTRAVENOUS (NOT SPECIFIED)
     Route: 042
     Dates: start: 20070504, end: 20070504
  3. ASPIRIN [Concomitant]
  4. LIPITOR [Concomitant]
  5. VALTREX [Concomitant]

REACTIONS (3)
  - ERYTHEMA [None]
  - SKIN EXFOLIATION [None]
  - ULCER [None]
